FAERS Safety Report 24425799 (Version 3)
Quarter: 2024Q4

REPORT INFORMATION
  Report Type: Spontaneous
  Country: US (occurrence: US)
  Receive Date: 20241011
  Receipt Date: 20241030
  Transmission Date: 20250115
  Serious: Yes (Other)
  Sender: NOVARTIS
  Company Number: US-002147023-NVSC2024US199619

PATIENT
  Sex: Male

DRUGS (2)
  1. PLUVICTO [Suspect]
     Active Substance: LUTETIUM LU-177 VIPIVOTIDE TETRAXETAN
     Indication: Hormone-refractory prostate cancer
     Dosage: UNK
     Route: 065
     Dates: start: 20240806
  2. PLUVICTO [Suspect]
     Active Substance: LUTETIUM LU-177 VIPIVOTIDE TETRAXETAN
     Dosage: 200 MCI(6 DOSES FOR 6 WEEKS)(VIAL)
     Route: 042
     Dates: start: 20241003, end: 20241003

REACTIONS (5)
  - Stomatitis [Unknown]
  - Craniofacial fracture [Unknown]
  - Toothache [Unknown]
  - Laboratory test abnormal [Unknown]
  - Pain in jaw [Unknown]
